FAERS Safety Report 9339057 (Version 2)
Quarter: 2013Q3

REPORT INFORMATION
  Report Type: Report from Study
  Country: JP (occurrence: JP)
  Receive Date: 20130610
  Receipt Date: 20130715
  Transmission Date: 20140515
  Serious: Yes (Hospitalization)
  Sender: FDA-Public Use
  Company Number: JP-GENZYME-THYM-1003849

PATIENT
  Age: 19 Year
  Sex: Female
  Weight: 44 kg

DRUGS (19)
  1. THYMOGLOBULIN [Suspect]
     Indication: BONE MARROW CONDITIONING REGIMEN
     Dosage: 20 MG, QD
     Route: 065
     Dates: start: 20121021, end: 20121021
  2. THYMOGLOBULIN [Suspect]
     Dosage: 30 MG, QD FOR 6 HRS
     Route: 065
     Dates: start: 20121022, end: 20121022
  3. THYMOGLOBULIN [Suspect]
     Dosage: 50 MG, PER DAY FOR 6 HRS
     Route: 065
     Dates: start: 20121023, end: 20121023
  4. TACROLIMUS [Concomitant]
     Indication: PROPHYLAXIS AGAINST GRAFT VERSUS HOST DISEASE
     Dosage: UNK
     Route: 065
     Dates: start: 20121021, end: 20130110
  5. METHYLPREDNISOLONE [Concomitant]
     Indication: PROPHYLAXIS AGAINST GRAFT VERSUS HOST DISEASE
     Dosage: UNK
     Route: 065
  6. CICLOSPORIN [Concomitant]
     Indication: PROPHYLAXIS AGAINST GRAFT VERSUS HOST DISEASE
     Dosage: UNK
     Route: 065
     Dates: start: 20130111
  7. MELPHALAN [Concomitant]
     Indication: TRANSPLANT
     Dosage: UNK
     Route: 065
     Dates: end: 20121021
  8. EPIRUBICIN [Concomitant]
     Indication: TRANSPLANT
     Dosage: UNK
     Route: 065
     Dates: end: 20121021
  9. FINIBAX [Concomitant]
     Indication: INFECTION PROPHYLAXIS
     Dosage: UNK
     Route: 065
     Dates: end: 20121030
  10. TEICOPLANIN [Concomitant]
     Indication: INFECTION PROPHYLAXIS
     Dosage: UNK
     Route: 065
     Dates: end: 20121128
  11. CANCIDAS [Concomitant]
     Indication: INFECTION PROPHYLAXIS
     Dosage: UNK
     Route: 065
     Dates: end: 20121128
  12. LASIX [Concomitant]
     Indication: CARDIOVASCULAR EVENT PROPHYLAXIS
     Dosage: UNK
     Route: 065
     Dates: start: 20121021, end: 20121026
  13. MEROPEN [Concomitant]
     Indication: INFECTION PROPHYLAXIS
     Dosage: UNK
     Route: 065
     Dates: start: 20121030, end: 20121128
  14. ACYCLOVIR [Concomitant]
     Indication: INFECTION PROPHYLAXIS
     Dosage: UNK
     Route: 065
     Dates: start: 20121121, end: 20121128
  15. FOSCOVIR [Concomitant]
     Indication: INFECTION PROPHYLAXIS
     Dosage: UNK
     Route: 065
     Dates: start: 20121206, end: 20130215
  16. CEFTAZIDIME [Concomitant]
     Indication: INFECTION PROPHYLAXIS
     Dosage: UNK
     Route: 065
     Dates: start: 20121224, end: 20130111
  17. NEUTROGIN [Concomitant]
     Indication: ACUTE MYELOID LEUKAEMIA
     Dosage: UNK
     Route: 065
     Dates: start: 20121029, end: 20121101
  18. GRAN [Concomitant]
     Indication: ACUTE MYELOID LEUKAEMIA
     Dosage: UNK
     Route: 065
     Dates: start: 20121225, end: 20121226
  19. FUNGUARD [Concomitant]
     Indication: INFECTION PROPHYLAXIS
     Dosage: UNK
     Route: 065
     Dates: start: 20130201, end: 20130208

REACTIONS (6)
  - Hypoproteinaemia [Unknown]
  - Thrombotic microangiopathy [Recovered/Resolved]
  - Engraftment syndrome [Recovered/Resolved]
  - Hepatic vein occlusion [Recovered/Resolved]
  - Graft versus host disease in skin [Recovered/Resolved]
  - Activities of daily living impaired [Recovered/Resolved]
